FAERS Safety Report 7805983-5 (Version None)
Quarter: 2011Q4

REPORT INFORMATION
  Report Type: 
  Country: None (occurrence: None)
  Receive Date: 20111006
  Receipt Date: 20111006
  Transmission Date: 20120403
  Serious: Yes (Hospitalization)
  Sender: FDA-Public Use
  Company Number: None

PATIENT
  Age: 54 Year
  Sex: Female
  Weight: 96.6162 kg

DRUGS (5)
  1. ACETAMINOPHEN [Concomitant]
  2. ACETAMIINOPHEN [Concomitant]
  3. ACETAMINOPHEN [Suspect]
     Indication: PAIN IN EXTREMITY
     Dosage: 2 CAPLETS 500 MG ONCE RX # 22-6022017
     Dates: start: 20110926
  4. ACETAMINOPHEN [Suspect]
     Indication: FOOT FRACTURE
     Dosage: 2 CAPLETS 500 MG ONCE RX # 22-6022017
     Dates: start: 20110926
  5. RAPID RELEASE GELS [Concomitant]

REACTIONS (3)
  - TABLET PHYSICAL ISSUE [None]
  - ABDOMINAL DISTENSION [None]
  - ABDOMINAL PAIN UPPER [None]
